FAERS Safety Report 8277473-X (Version None)
Quarter: 2012Q2

REPORT INFORMATION
  Report Type: 
  Country: None (occurrence: None)
  Receive Date: 20120412
  Receipt Date: 20120405
  Transmission Date: 20120825
  Serious: Yes (Hospitalization)
  Sender: FDA-Public Use
  Company Number: PHHY2012PT029673

PATIENT
  Age: 50 Year
  Sex: Female

DRUGS (7)
  1. AZATHIOPRINE [Concomitant]
  2. CALCIUM CARBONATE [Concomitant]
  3. PREDNISONE TAB [Suspect]
     Indication: RHEUMATOID ARTHRITIS
     Dosage: UNK
     Dates: start: 20030101
  4. HYDROXYCHLOROQUINE SULFATE [Concomitant]
  5. VITAMIN D [Concomitant]
  6. ALENDRONIC ACID [Suspect]
     Dosage: 70 MG PER WEEK
     Dates: start: 20030101
  7. ADALIMUMAB [Concomitant]
     Dosage: 40 MG EVERY OTHER WEEK

REACTIONS (7)
  - MULTIPLE FRACTURES [None]
  - BONE PAIN [None]
  - WRIST FRACTURE [None]
  - CHEST PAIN [None]
  - BONE METABOLISM DISORDER [None]
  - RIB FRACTURE [None]
  - FRACTURE [None]
